FAERS Safety Report 12160804 (Version 2)
Quarter: 2016Q1

REPORT INFORMATION
  Report Type: Spontaneous
  Country: JP (occurrence: JP)
  Receive Date: 20160308
  Receipt Date: 20160322
  Transmission Date: 20160526
  Serious: Yes (Other)
  Sender: FDA-Public Use
  Company Number: JP-CELGENE-JPN-2016026769

PATIENT

DRUGS (1)
  1. VIDAZA [Suspect]
     Active Substance: AZACITIDINE
     Indication: PRODUCT USED FOR UNKNOWN INDICATION
     Route: 065

REACTIONS (1)
  - Neurogenic bladder [Recovered/Resolved]

NARRATIVE: CASE EVENT DATE: 20160215
